FAERS Safety Report 9412935 (Version 2)
Quarter: 2013Q2

REPORT INFORMATION
  Report Type: Spontaneous
  Country: US (occurrence: None)
  Receive Date: 20130613
  Receipt Date: 20130613
  Transmission Date: 20140414
  Serious: Yes (Hospitalization)
  Sender: FDA-Public Use
  Company Number: 2013035676

PATIENT
  Age: 71 Year
  Sex: Male
  Weight: 78.47 kg

DRUGS (31)
  1. PRIVIGEN [Suspect]
     Indication: IMMUNODEFICIENCY COMMON VARIABLE
     Dosage: 35 G 1X/MONTH IV
     Route: 042
  2. DIPHENHYDRAMINE (DIPHENHYDRAMINE) [Concomitant]
  3. HEPARIN (HEPARIN) [Concomitant]
  4. SODIUM CHLORIDE [Concomitant]
  5. EPI-PEN (EPINEPHRINE) [Concomitant]
  6. TAZTIA XT (DILTIAZEM HYDROCHLORIDE) [Concomitant]
  7. COUMADIN (WARFARIN SODIUM) [Concomitant]
  8. SINGULAIR [Concomitant]
  9. DETROL LA (TOLTERODINE) [Concomitant]
  10. ASTEPRO (AZELASTINE) [Concomitant]
  11. LASIX (FUROSEMIDE) [Concomitant]
  12. TRICOR (FENOSEMIDE) [Concomitant]
  13. QUINIDINE SULF ER (QUINIDINE SULFATE) [Concomitant]
  14. PROMETHAZINE (PROMETHAZINE) [Concomitant]
  15. FOLIC ACID (FOLIC ACID) [Concomitant]
  16. GABAPENTIN (GABAPENTIN) [Concomitant]
  17. SYMBICORT (BUDESONIDE W/ FORMOTEROL FUMARATE) [Concomitant]
  18. NEXIUM (ESOMEPRAZOLE MAGNESIUM) [Concomitant]
  19. SPIRONOLACTONE (SPIRONOLACTONE) [Concomitant]
  20. ALLOPURINOL [Concomitant]
  21. FEXOFENADINE [Concomitant]
  22. HYDROXYZINE (HYDROXYZINE) [Concomitant]
  23. DOCUSATE SODIUM (DOCUSATE SODIUM) [Concomitant]
  24. MAGNESIUM OXIDE (MAGNESIUM OXIDE) [Concomitant]
  25. THEOPHYLLINE ER (THEOPHYLLINE PIPERAZINE P-AMINOBENZOATE) [Concomitant]
  26. DOCUSATE CAL (DOCUSATE CALCIUM) [Concomitant]
  27. LOPERAMIDE (LOPERAMIDE) [Concomitant]
  28. PROAIR (SALBUTAMOL SULFATE) [Concomitant]
  29. NASCOBAL (CYANOCOBALAMIN) [Concomitant]
  30. VITAMIN B-12 (CYANOCOBALAMIN) [Concomitant]
  31. VITAMIN D (ERGOCALCIFEROL) [Concomitant]

REACTIONS (3)
  - Faecal incontinence [None]
  - Gastrointestinal stoma complication [None]
  - Gastric infection [None]
